FAERS Safety Report 7671550-X (Version None)
Quarter: 2011Q3

REPORT INFORMATION
  Report Type: 
  Country: None (occurrence: None)
  Receive Date: 20110809
  Receipt Date: 20110809
  Transmission Date: 20111222
  Serious: Yes (Disabling)
  Sender: FDA-Public Use
  Company Number: None

PATIENT
  Age: 88 Year
  Sex: Male
  Weight: 70 kg

DRUGS (2)
  1. HEPARIN [Suspect]
     Indication: ACUTE CORONARY SYNDROME
     Dosage: APPROX. 12,500 UNITS
     Route: 041
     Dates: start: 20100811, end: 20100811
  2. HEPARIN [Suspect]
     Indication: ACUTE MYOCARDIAL INFARCTION
     Dosage: APPROX. 12,500 UNITS
     Route: 041
     Dates: start: 20100811, end: 20100811

REACTIONS (2)
  - INFUSION SITE HAEMORRHAGE [None]
  - INCORRECT DRUG ADMINISTRATION RATE [None]
